FAERS Safety Report 5370761-6 (Version None)
Quarter: 2007Q2

REPORT INFORMATION
  Report Type: 
  Country: None (occurrence: None)
  Receive Date: 20070626
  Receipt Date: 20070620
  Transmission Date: 20071010
  Serious: Yes (Other)
  Sender: FDA-Public Use
  Company Number: A0646622A

PATIENT
  Age: 83 Year
  Sex: Female
  Weight: 38.6 kg

DRUGS (18)
  1. REQUIP [Suspect]
     Dosage: 3MG PER DAY
     Route: 048
     Dates: start: 20070101
  2. LEVOTHROID [Concomitant]
     Indication: THYROID DISORDER
  3. PROCHLORPERAZINE [Concomitant]
  4. SENNA [Concomitant]
  5. PRILOSEC [Concomitant]
  6. DIAZEPAM [Concomitant]
  7. ASPIRIN [Concomitant]
     Indication: ANTICOAGULANT THERAPY
  8. VITAMIN B [Concomitant]
  9. BELLADONA [Concomitant]
  10. ASCORBIC ACID [Concomitant]
  11. DILTIAZEM [Concomitant]
  12. ALPHAGAN [Concomitant]
     Indication: GLAUCOMA
  13. BRIMONIDINE TARTRATE [Concomitant]
  14. TRUSOPT [Concomitant]
     Indication: GLAUCOMA
  15. VITAMIN E [Concomitant]
  16. PRILOSEC [Concomitant]
     Indication: GASTRIC DISORDER
  17. VITAMIN D [Concomitant]
  18. XALATAN [Concomitant]
     Indication: GLAUCOMA

REACTIONS (6)
  - ABDOMINAL PAIN UPPER [None]
  - ASTHENIA [None]
  - CONVULSION [None]
  - DYSKINESIA [None]
  - GAIT DISTURBANCE [None]
  - NAUSEA [None]
